FAERS Safety Report 8559146-9 (Version None)
Quarter: 2012Q3

REPORT INFORMATION
  Report Type: 
  Country: None (occurrence: None)
  Receive Date: 20120802
  Receipt Date: 20120723
  Transmission Date: 20120928
  Serious: Yes (Disabling)
  Sender: FDA-Public Use
  Company Number: US-009507513-1207USA010755

PATIENT

DRUGS (2)
  1. ZOCOR [Suspect]
     Dosage: 80 MG, HS
     Route: 048
  2. NIASPAN [Suspect]
     Dosage: 2 G, QD

REACTIONS (5)
  - MUSCULAR WEAKNESS [None]
  - MYALGIA [None]
  - NEUROPATHY PERIPHERAL [None]
  - MUSCULOSKELETAL DISORDER [None]
  - LIVER DISORDER [None]
